FAERS Safety Report 24825461 (Version 1)
Quarter: 2025Q1

REPORT INFORMATION
  Report Type: Spontaneous
  Country: AU (occurrence: AU)
  Receive Date: 20250109
  Receipt Date: 20250109
  Transmission Date: 20250408
  Serious: Yes (Death, Other)
  Sender: PFIZER
  Company Number: AU-PFIZER INC-PV202400170772

PATIENT
  Age: 52 Year
  Sex: Male

DRUGS (11)
  1. VANCOMYCIN HYDROCHLORIDE [Suspect]
     Active Substance: VANCOMYCIN HYDROCHLORIDE
     Indication: Enterococcal bacteraemia
     Route: 042
     Dates: start: 202002
  2. VANCOMYCIN HYDROCHLORIDE [Suspect]
     Active Substance: VANCOMYCIN HYDROCHLORIDE
     Indication: Liver abscess
  3. AMOXICILLIN [Suspect]
     Active Substance: AMOXICILLIN
     Indication: Enterococcal bacteraemia
     Route: 042
     Dates: start: 202002
  4. AMOXICILLIN [Suspect]
     Active Substance: AMOXICILLIN
     Indication: Liver abscess
  5. AMOXICILLIN [Suspect]
     Active Substance: AMOXICILLIN
     Indication: Liver abscess
     Route: 048
  6. BACTRIM [Suspect]
     Active Substance: SULFAMETHOXAZOLE\TRIMETHOPRIM
     Indication: Liver abscess
     Route: 048
  7. OSTEOVIT D [Concomitant]
     Indication: Vitamin D deficiency
     Dosage: 1000 IU, DAILY
  8. NEXIUM I.V. [Concomitant]
     Active Substance: ESOMEPRAZOLE SODIUM
  9. FUROSEMIDE [Concomitant]
     Active Substance: FUROSEMIDE
     Dosage: 40 MG, 2X/DAY
  10. SLOW K [Concomitant]
     Active Substance: POTASSIUM CHLORIDE
     Dosage: 1200 MG, 2X/DAY (600MG 2XBD)
  11. BACTROBAN [Concomitant]
     Active Substance: MUPIROCIN CALCIUM

REACTIONS (1)
  - Drug ineffective [Fatal]

NARRATIVE: CASE EVENT DATE: 20200101
